FAERS Safety Report 18543263 (Version 2)
Quarter: 2021Q1

REPORT INFORMATION
  Report Type: Spontaneous
  Country: DE (occurrence: DE)
  Receive Date: 20201125
  Receipt Date: 20210304
  Transmission Date: 20210419
  Serious: Yes (Hospitalization, Disabling, Other)
  Sender: FDA-Public Use
  Company Number: DE-009507513-2011DEU011507

PATIENT
  Age: 83 Year
  Sex: Male

DRUGS (1)
  1. BCG LIVE [Suspect]
     Active Substance: BACILLUS CALMETTE-GUERIN SUBSTRAIN TICE LIVE ANTIGEN
     Indication: TRANSITIONAL CELL CARCINOMA
     Dosage: UNK
     Route: 043
     Dates: start: 2012, end: 2017

REACTIONS (2)
  - Cerebral infarction [Recovering/Resolving]
  - Central nervous system vasculitis [Recovering/Resolving]
